FAERS Safety Report 4288693-3 (Version None)
Quarter: 2004Q1

REPORT INFORMATION
  Report Type: 
  Country: None (occurrence: None)
  Receive Date: 20040205
  Receipt Date: 20040116
  Transmission Date: 20041129
  Serious: Yes (Death, Hospitalization, Other)
  Sender: FDA-Public Use
  Company Number: EWC031036699

PATIENT
  Age: 82 Year
  Sex: Female
  Weight: 50 kg

DRUGS (5)
  1. ZYPREXA [Suspect]
     Indication: ABNORMAL BEHAVIOUR
     Dosage: 5 MG/DAY
     Dates: start: 20030901, end: 20030901
  2. LEVOSULPIRIDE [Concomitant]
  3. DIFOSFONAL (CLODRONATE DISODIUM) [Concomitant]
  4. CALCIUM [Concomitant]
  5. STEROIDS [Concomitant]

REACTIONS (16)
  - ACIDOSIS [None]
  - AGITATION [None]
  - CHRONIC MYELOID LEUKAEMIA [None]
  - COMA [None]
  - CONDITION AGGRAVATED [None]
  - CONFUSIONAL STATE [None]
  - DISSEMINATED INTRAVASCULAR COAGULATION [None]
  - DRUG INTERACTION [None]
  - FIBRIN D DIMER INCREASED [None]
  - LEUKAEMIA RECURRENT [None]
  - LEUKAEMOID REACTION [None]
  - PLATELET COUNT DECREASED [None]
  - PULMONARY EMBOLISM [None]
  - RESPIRATORY FAILURE [None]
  - TACHYPNOEA [None]
  - WHITE BLOOD CELL COUNT DECREASED [None]
